FAERS Safety Report 9538218 (Version 1)
Quarter: 2013Q3

REPORT INFORMATION
  Report Type: Spontaneous
  Country: US (occurrence: US)
  Receive Date: 20130920
  Receipt Date: 20130920
  Transmission Date: 20140515
  Serious: No
  Sender: FDA-Public Use
  Company Number: US-B.I. PHARMACEUTICALS,INC./RIDGEFIELD-2013-BI-28076BP

PATIENT
  Age: 51 Year
  Sex: Female
  Weight: 64 kg

DRUGS (4)
  1. ZANTAC (RANITIDINE HYDROCHLORIDE) [Suspect]
     Indication: DYSPEPSIA
     Route: 048
     Dates: start: 201305, end: 20130906
  2. ZANTAC (RANITIDINE HYDROCHLORIDE) [Suspect]
     Route: 048
     Dates: start: 201305, end: 20130906
  3. ZANTAC (RANITIDINE HYDROCHLORIDE) [Suspect]
     Indication: DYSPEPSIA
     Route: 048
     Dates: start: 201305, end: 20130906
  4. ZANTAC (RANITIDINE HYDROCHLORIDE) [Suspect]
     Route: 048
     Dates: start: 201305, end: 20130906

REACTIONS (2)
  - Alopecia [Not Recovered/Not Resolved]
  - Intentional overdose [Recovered/Resolved]
